FAERS Safety Report 26096435 (Version 2)
Quarter: 2025Q4

REPORT INFORMATION
  Report Type: Spontaneous
  Country: CN (occurrence: CN)
  Receive Date: 20251127
  Receipt Date: 20251204
  Transmission Date: 20260118
  Serious: Yes (Hospitalization, Other)
  Sender: MERCK SHARP & DOHME LLC
  Company Number: CN-009507513-2351350

PATIENT
  Age: 45 Year
  Sex: Female
  Weight: 60 kg

DRUGS (3)
  1. PEMBROLIZUMAB [Suspect]
     Active Substance: PEMBROLIZUMAB
     Indication: Undifferentiated sarcoma
     Dosage: TIME INTERVAL: TOTAL
     Route: 041
     Dates: start: 20251022, end: 20251022
  2. CISPLATIN [Suspect]
     Active Substance: CISPLATIN
     Indication: Undifferentiated sarcoma
     Dosage: TIME INTERVAL: TOTAL
     Route: 041
     Dates: start: 20251022, end: 20251022
  3. DOXORUBICIN HYDROCHLORIDE [Suspect]
     Active Substance: DOXORUBICIN HYDROCHLORIDE
     Indication: Undifferentiated sarcoma
     Dosage: TIME INTERVAL: TOTAL
     Route: 041
     Dates: start: 20251023, end: 20251023

REACTIONS (9)
  - Malignant neoplasm progression [Unknown]
  - Hypocalcaemia [Recovering/Resolving]
  - Malnutrition [Recovering/Resolving]
  - Diarrhoea [Recovering/Resolving]
  - Feeding disorder [Unknown]
  - Product use issue [Unknown]
  - Vomiting [Unknown]
  - Nausea [Unknown]
  - Electrolyte imbalance [Recovering/Resolving]

NARRATIVE: CASE EVENT DATE: 20250101
